FAERS Safety Report 8297017-6 (Version None)
Quarter: 2012Q2

REPORT INFORMATION
  Report Type: 
  Country: None (occurrence: None)
  Receive Date: 20120419
  Receipt Date: 20120405
  Transmission Date: 20120825
  Serious: Yes (Other)
  Sender: FDA-Public Use
  Company Number: BR-AMGEN-BRASP2012021974

PATIENT
  Age: 49 Year
  Sex: Male
  Weight: 65 kg

DRUGS (3)
  1. ENBREL [Suspect]
     Indication: PSORIASIS
     Dosage: 50 MG, WEEKLY
     Route: 058
     Dates: start: 20120101
  2. POLARAMINE [Concomitant]
     Indication: ANTIALLERGIC THERAPY
     Dosage: UNK
  3. CLONAZEPAM [Concomitant]
     Indication: SLEEP DISORDER
     Dosage: UNK

REACTIONS (10)
  - WOUND HAEMORRHAGE [None]
  - SLUGGISHNESS [None]
  - SEXUAL DYSFUNCTION [None]
  - WOUND [None]
  - FATIGUE [None]
  - INSOMNIA [None]
  - WEIGHT DECREASED [None]
  - DECREASED APPETITE [None]
  - INJECTION SITE PRURITUS [None]
  - WOUND SECRETION [None]
